FAERS Safety Report 16268591 (Version 2)
Quarter: 2019Q2

REPORT INFORMATION
  Report Type: Spontaneous
  Country: NL (occurrence: NL)
  Receive Date: 20190503
  Receipt Date: 20190514
  Transmission Date: 20190711
  Serious: Yes (Hospitalization)
  Sender: FDA-Public Use
  Company Number: NL-B.I. PHARMACEUTICALS,INC./RIDGEFIELD-2019-BI-019172

PATIENT
  Age: 74 Year
  Sex: Male

DRUGS (2)
  1. FLUCLOXACILLINE [Suspect]
     Active Substance: FLUCLOXACILLIN
     Indication: STAPHYLOCOCCAL BACTERAEMIA
     Route: 042
  2. PRADAXA [Suspect]
     Active Substance: DABIGATRAN ETEXILATE MESYLATE
     Indication: ATRIAL FIBRILLATION
     Route: 065

REACTIONS (7)
  - Staphylococcal bacteraemia [Unknown]
  - Oedema peripheral [Unknown]
  - Dyspnoea [Unknown]
  - Subcutaneous haematoma [Recovered/Resolved]
  - Nephropathy toxic [Unknown]
  - Renal tubular necrosis [Unknown]
  - Bleeding time prolonged [Recovered/Resolved]
